FAERS Safety Report 6164337-0 (Version None)
Quarter: 2009Q2

REPORT INFORMATION
  Report Type: 
  Country: None (occurrence: None)
  Receive Date: 20090422
  Receipt Date: 20090417
  Transmission Date: 20091009
  Serious: Yes (Other)
  Sender: FDA-Public Use
  Company Number: DE-BRISTOL-MYERS SQUIBB COMPANY-14243208

PATIENT
  Age: 29 Year
  Sex: Female
  Weight: 67 kg

DRUGS (4)
  1. SUSTIVA [Suspect]
     Indication: HIV INFECTION
     Route: 048
     Dates: start: 20080501, end: 20080601
  2. TRUVADA [Suspect]
     Indication: HIV INFECTION
     Dosage: 1 DOSAGE FORM = 300/200MG
     Route: 048
     Dates: start: 20080501
  3. TRUVADA [Suspect]
     Indication: HEPATITIS B VIRUS TEST
     Dosage: 1 DOSAGE FORM = 300/200MG
     Route: 048
     Dates: start: 20080501
  4. KALETRA [Suspect]

REACTIONS (2)
  - PREGNANCY [None]
  - PREMATURE LABOUR [None]
